FAERS Safety Report 7395021-3 (Version None)
Quarter: 2011Q2

REPORT INFORMATION
  Report Type: 
  Country: None (occurrence: None)
  Receive Date: 20110405
  Receipt Date: 20110321
  Transmission Date: 20111010
  Serious: Yes (Other)
  Sender: FDA-Public Use
  Company Number: FR-CUBIST-2011S1000200

PATIENT

DRUGS (2)
  1. CUBICIN [Suspect]
     Indication: ENDOCARDITIS
     Route: 042
  2. LINEZOLID [Concomitant]
     Indication: PRODUCT USED FOR UNKNOWN INDICATION
     Route: 065

REACTIONS (4)
  - EOSINOPHILIC PNEUMONIA [None]
  - PULMONARY OEDEMA [None]
  - PROTEUS TEST POSITIVE [None]
  - EOSINOPHILIA [None]
